FAERS Safety Report 16465494 (Version 4)
Quarter: 2019Q3

REPORT INFORMATION
  Report Type: Spontaneous
  Country: US (occurrence: US)
  Receive Date: 20190621
  Receipt Date: 20190904
  Transmission Date: 20191004
  Serious: No
  Sender: FDA-Public Use
  Company Number: US-ASTRAZENECA-2019SE78111

PATIENT
  Sex: Male
  Weight: 68 kg

DRUGS (5)
  1. PREDNISONE. [Concomitant]
     Active Substance: PREDNISONE
     Indication: BRONCHITIS
     Dosage: AS REQUIRED
     Route: 065
  2. LISINOPRIL. [Suspect]
     Active Substance: LISINOPRIL
     Indication: HYPERTENSION
     Dosage: ONE-HALF OF THE 5MG TABLET
     Route: 048
  3. AZITHROMYCIN ANHYDROUS. [Concomitant]
     Active Substance: AZITHROMYCIN ANHYDROUS
     Dosage: AS REQUIRED
     Route: 065
  4. SYMBICORT [Suspect]
     Active Substance: BUDESONIDE\FORMOTEROL FUMARATE DIHYDRATE
     Indication: ASTHMA
     Dosage: 160/4.5 MCG, 1 PUFF, TWICE A DAY
     Route: 055
  5. SYMBICORT [Suspect]
     Active Substance: BUDESONIDE\FORMOTEROL FUMARATE DIHYDRATE
     Indication: ASTHMA
     Dosage: 160/4.5 MCG, 1 PUFF, ONCE A DAY
     Route: 055

REACTIONS (10)
  - Wrong technique in device usage process [Unknown]
  - Device failure [Unknown]
  - Off label use [Unknown]
  - Device issue [Unknown]
  - Wheezing [Recovered/Resolved]
  - Intentional product misuse [Not Recovered/Not Resolved]
  - Dysphonia [Unknown]
  - Bronchitis [Unknown]
  - Product taste abnormal [Unknown]
  - Incorrect dose administered [Unknown]
